FAERS Safety Report 15425958 (Version 2)
Quarter: 2018Q4

REPORT INFORMATION
  Report Type: Report from Study
  Country: BR (occurrence: BR)
  Receive Date: 20180925
  Receipt Date: 20181002
  Transmission Date: 20190204
  Serious: Yes (Other)
  Sender: FDA-Public Use
  Company Number: PHHY2018BR105565

PATIENT
  Age: 11 Year
  Sex: Female
  Weight: 26 kg

DRUGS (1)
  1. OMNITROPE [Suspect]
     Active Substance: SOMATROPIN
     Indication: GROWTH RETARDATION
     Dosage: 1.2 MG, QHS
     Route: 058
     Dates: start: 20180910

REACTIONS (4)
  - Crying [Unknown]
  - Incorrect dose administered [Unknown]
  - Shock [Unknown]
  - Injection site pain [Unknown]

NARRATIVE: CASE EVENT DATE: 20180910
